FAERS Safety Report 5317366-0 (Version None)
Quarter: 2007Q2

REPORT INFORMATION
  Report Type: 
  Country: None (occurrence: None)
  Receive Date: 20070504
  Receipt Date: 20070426
  Transmission Date: 20071010
  Serious: Yes (Life-Threatening, Hospitalization)
  Sender: FDA-Public Use
  Company Number: GB-MERCK-0704GBR00243

PATIENT
  Age: 64 Year
  Sex: Male

DRUGS (4)
  1. ZETIA [Suspect]
     Indication: BLOOD CHOLESTEROL INCREASED
     Route: 048
     Dates: start: 20060501, end: 20060615
  2. ATORVASTATIN [Suspect]
     Indication: BLOOD CHOLESTEROL INCREASED
     Route: 048
     Dates: start: 20060301, end: 20060401
  3. ATORVASTATIN [Suspect]
     Route: 048
     Dates: start: 20060401, end: 20060501
  4. NIFEDIPINE [Concomitant]
     Indication: HYPERTENSION
     Route: 048
     Dates: start: 20060301, end: 20060615

REACTIONS (3)
  - BLOOD CREATININE INCREASED [None]
  - MYOPATHY [None]
  - RENAL FAILURE ACUTE [None]
